FAERS Safety Report 6309730-8 (Version None)
Quarter: 2009Q3

REPORT INFORMATION
  Report Type: 
  Country: None (occurrence: None)
  Receive Date: 20090814
  Receipt Date: 20090811
  Transmission Date: 20100115
  Serious: Yes (Death, Other)
  Sender: FDA-Public Use
  Company Number: PHHY2009BR33728

PATIENT
  Sex: Female

DRUGS (5)
  1. EXELON [Suspect]
     Indication: DEMENTIA ALZHEIMER'S TYPE
     Dosage: 9MG/5CM2
     Route: 062
     Dates: start: 20080601
  2. LUDIOMIL [Concomitant]
  3. NEULEPTIL [Concomitant]
  4. SEROQUEL [Concomitant]
  5. RIVOTRIL [Concomitant]
     Indication: SLEEP DISORDER

REACTIONS (4)
  - DEATH [None]
  - METASTASES TO LUNG [None]
  - RENAL CANCER [None]
  - RENAL CANCER METASTATIC [None]
